FAERS Safety Report 9196268 (Version 2)
Quarter: 2013Q2

REPORT INFORMATION
  Report Type: Spontaneous
  Country: US (occurrence: None)
  Receive Date: 20120709
  Receipt Date: 20121107
  Transmission Date: 20140414
  Serious: Yes (Other)
  Sender: FDA-Public Use
  Company Number: 2012HGS-003669

PATIENT
  Age: 51 Year
  Sex: Female
  Weight: 52.62 kg

DRUGS (6)
  1. BENLYSTA [Suspect]
     Indication: SYSTEMIC LUPUS ERYTHEMATOSUS
     Dosage: 1 IN 28 D, INTRAVENOUS DRIP
     Route: 041
  2. PREDNISONE (PREDNISONE) (PREDNISONE) [Concomitant]
  3. PLAQUENIL (HYDROXYCHLOROQUINE) [Concomitant]
  4. VITAMIN D (ERGOCALCIFEROL) (ERGOCALCIFEROL) [Concomitant]
  5. PROTONIX (PANTOPRAZOLE) SODIUM SESQUIHYDRATE) (PANTOPRAZOLE SODIUM SESQUIHYDRATE) (PANTORAZOLE SODIUM SESQUIHYDRATE) [Concomitant]
  6. FIORICET WITH CODEINE (FIORICET WITH CODEINE) (CODEINE PHOSPHATE, CAFFEINE,BUTALBITAL, PARACETAMOL) [Concomitant]

REACTIONS (7)
  - Vomiting [None]
  - Hyperhidrosis [None]
  - Chills [None]
  - Feeling hot [None]
  - Systemic lupus erythematosus [None]
  - Tremor [None]
  - Diarrhoea [None]
